FAERS Safety Report 4473957-0 (Version None)
Quarter: 2004Q4

REPORT INFORMATION
  Report Type: 
  Country: None (occurrence: None)
  Receive Date: 20041014
  Receipt Date: 20041004
  Transmission Date: 20050328
  Serious: Yes (Other)
  Sender: FDA-Public Use
  Company Number: GB-JNJFOC-20041001289

PATIENT
  Sex: Female

DRUGS (17)
  1. REMICADE [Suspect]
     Indication: RHEUMATOID ARTHRITIS
     Route: 042
  2. MORPHINE SULFATE [Concomitant]
  3. PREDNISOLONE [Concomitant]
  4. FOSAMAX [Concomitant]
  5. PARACETAMOL [Concomitant]
  6. CALCICHEW [Concomitant]
  7. COD LIVER OIL [Concomitant]
  8. MULTI-VITAMINS [Concomitant]
  9. MULTI-VITAMINS [Concomitant]
  10. MULTI-VITAMINS [Concomitant]
  11. MULTI-VITAMINS [Concomitant]
  12. MULTI-VITAMINS [Concomitant]
  13. MULTI-VITAMINS [Concomitant]
  14. MULTI-VITAMINS [Concomitant]
  15. MULTI-VITAMINS [Concomitant]
  16. METHOTREXATE [Concomitant]
  17. FOLIC ACID [Concomitant]

REACTIONS (1)
  - LICHEN PLANUS [None]
